FAERS Safety Report 25024027 (Version 1)
Quarter: 2025Q1

REPORT INFORMATION
  Report Type: Report from Study
  Country: CA (occurrence: CA)
  Receive Date: 20250228
  Receipt Date: 20250228
  Transmission Date: 20250409
  Serious: Yes (Other)
  Sender: TAKEDA
  Company Number: CA-TAKEDA-2025TUS019355

PATIENT
  Age: 60 Year
  Sex: Female

DRUGS (5)
  1. VEDOLIZUMAB [Suspect]
     Active Substance: VEDOLIZUMAB
     Indication: Crohn^s disease
  2. HUMIRA [Concomitant]
     Active Substance: ADALIMUMAB
  3. BUDESONIDE [Concomitant]
     Active Substance: BUDESONIDE
  4. ENTOCORT [Concomitant]
     Active Substance: BUDESONIDE
  5. Cortiment [Concomitant]

REACTIONS (4)
  - Pneumonia [Recovered/Resolved]
  - Jaw disorder [Recovered/Resolved]
  - Swelling face [Recovered/Resolved]
  - Gastroenteritis [Recovered/Resolved]

NARRATIVE: CASE EVENT DATE: 20241227
